FAERS Safety Report 5816082-6 (Version None)
Quarter: 2008Q3

REPORT INFORMATION
  Report Type: 
  Country: None (occurrence: None)
  Receive Date: 20080721
  Receipt Date: 20080709
  Transmission Date: 20090109
  Serious: Yes (Hospitalization)
  Sender: FDA-Public Use
  Company Number: TH-WYE-H04910408

PATIENT
  Sex: Female

DRUGS (5)
  1. ATIVAN [Suspect]
     Dosage: UNKNOWN
  2. ATIVAN [Suspect]
     Dosage: UNKNOWN
  3. SODIUM [Concomitant]
     Indication: HYPONATRAEMIA
     Dosage: UNKNOWN
  4. EFFEXOR [Suspect]
     Indication: DEPRESSION
     Route: 048
  5. METHYLPHENIDATE HCL [Concomitant]
     Indication: ATTENTION DEFICIT/HYPERACTIVITY DISORDER
     Dosage: UNKNOWN

REACTIONS (3)
  - DEREALISATION [None]
  - DRUG WITHDRAWAL SYNDROME [None]
  - HYPONATRAEMIA [None]
